FAERS Safety Report 25517059 (Version 1)
Quarter: 2025Q3

REPORT INFORMATION
  Report Type: Spontaneous
  Country: US (occurrence: US)
  Receive Date: 20250704
  Receipt Date: 20250704
  Transmission Date: 20251020
  Serious: No
  Sender: RADIUS PHARM
  Company Number: US-RADIUS HEALTH INC.-US-RADIUS-25046648

PATIENT
  Sex: Female

DRUGS (1)
  1. TYMLOS [Suspect]
     Active Substance: ABALOPARATIDE
     Indication: Product used for unknown indication

REACTIONS (5)
  - Investigation abnormal [Unknown]
  - Dizziness [Recovered/Resolved]
  - Palpitations [Recovered/Resolved]
  - Arthralgia [Unknown]
  - Product administered at inappropriate site [Unknown]
